FAERS Safety Report 4453381-7 (Version None)
Quarter: 2004Q3

REPORT INFORMATION
  Report Type: 
  Country: None (occurrence: None)
  Receive Date: 20040920
  Receipt Date: 20040906
  Transmission Date: 20050211
  Serious: Yes (Other)
  Sender: FDA-Public Use
  Company Number: JP-JNJFOC-20040901521

PATIENT
  Age: 29 Year
  Sex: Female

DRUGS (1)
  1. TAVANIC [Suspect]
     Indication: CYSTITIS
     Route: 049
     Dates: start: 20040519, end: 20040521

REACTIONS (2)
  - ABORTION MISSED [None]
  - DRUG EXPOSURE DURING PREGNANCY [None]
